FAERS Safety Report 12639922 (Version 1)
Quarter: 2016Q3

REPORT INFORMATION
  Report Type: Report from Study
  Country: MX (occurrence: MX)
  Receive Date: 20160810
  Receipt Date: 20160810
  Transmission Date: 20161109
  Serious: Yes (Other)
  Sender: FDA-Public Use
  Company Number: PHHY2016MX109035

PATIENT
  Sex: Female

DRUGS (1)
  1. EXELON PATCH [Suspect]
     Active Substance: RIVASTIGMINE
     Indication: CEREBRAL HYPOPERFUSION
     Dosage: 4.6 MG, QD
     Route: 062

REACTIONS (5)
  - Parkinson^s disease [Unknown]
  - Prescribed underdose [Unknown]
  - Seizure [Unknown]
  - Malaise [Unknown]
  - Product use issue [Recovered/Resolved]
